FAERS Safety Report 9128406 (Version 1)
Quarter: 2013Q1

REPORT INFORMATION
  Report Type: Report from Study
  Country: US (occurrence: US)
  Receive Date: 20130228
  Receipt Date: 20130228
  Transmission Date: 20140127
  Serious: No
  Sender: FDA-Public Use
  Company Number: US-ABBOTT-12P-163-1023292-00

PATIENT
  Sex: Male

DRUGS (2)
  1. ANDROGEL [Suspect]
     Indication: BLOOD TESTOSTERONE DECREASED
     Route: 061
     Dates: start: 201208
  2. ANDROGEL [Suspect]
     Dosage: DURATION: APPROXIMATELY 1 YEAR
     Route: 061
     Dates: start: 2011, end: 201208

REACTIONS (1)
  - Libido decreased [Not Recovered/Not Resolved]
